FAERS Safety Report 6280325-8 (Version None)
Quarter: 2009Q3

REPORT INFORMATION
  Report Type: 
  Country: None (occurrence: None)
  Receive Date: 20090724
  Receipt Date: 20090721
  Transmission Date: 20100115
  Serious: Yes (Hospitalization)
  Sender: FDA-Public Use
  Company Number: US-BIOGENIDEC-2009BI017462

PATIENT
  Age: 45 Year
  Sex: Female

DRUGS (4)
  1. TYSABRI [Suspect]
     Indication: MULTIPLE SCLEROSIS
     Route: 042
     Dates: start: 20080609, end: 20081017
  2. TYSABRI [Suspect]
     Route: 042
     Dates: start: 20090227
  3. IMITREX [Concomitant]
     Indication: MIGRAINE
  4. PRISTIQ [Concomitant]
     Indication: DRUG USE FOR UNKNOWN INDICATION

REACTIONS (7)
  - ANAPHYLACTIC SHOCK [None]
  - DEPRESSED MOOD [None]
  - DYSURIA [None]
  - EYE PAIN [None]
  - MEMORY IMPAIRMENT [None]
  - PAIN IN EXTREMITY [None]
  - REFLEXES ABNORMAL [None]
